FAERS Safety Report 23441620 (Version 1)
Quarter: 2024Q1

REPORT INFORMATION
  Report Type: Spontaneous
  Country: CH (occurrence: CH)
  Receive Date: 20240125
  Receipt Date: 20240125
  Transmission Date: 20240409
  Serious: Yes (Hospitalization)
  Sender: FDA-Public Use
  Company Number: None

PATIENT
  Age: 68 Year
  Sex: Female
  Weight: 83.5 kg

DRUGS (44)
  1. CLOPIDOGREL [Suspect]
     Active Substance: CLOPIDOGREL BISULFATE
     Indication: Embolic stroke
     Route: 048
     Dates: start: 202309, end: 20231128
  2. VANCOCIN [Suspect]
     Active Substance: VANCOMYCIN HYDROCHLORIDE
     Route: 042
     Dates: start: 20231129, end: 20231208
  3. VANCOCIN [Suspect]
     Active Substance: VANCOMYCIN HYDROCHLORIDE
     Dosage: ALLE 12H T1-2 1.5G, AB T2 1G
     Route: 042
     Dates: start: 20231128, end: 20231129
  4. NOVALGIN (METAMIZOLE SODIUM) [Suspect]
     Active Substance: METAMIZOLE SODIUM
     Indication: Diabetes mellitus
     Dosage: ANAMNESTIC INTERMITTENT?STOPPED AFTER AGRANULOCYTOSIS WAS DIAGNOSED
     Route: 048
  5. EMPAGLIFLOZIN [Concomitant]
     Active Substance: EMPAGLIFLOZIN
     Indication: Left ventricular failure
     Route: 048
     Dates: start: 202309, end: 20231129
  6. OXYCODONE HYDROCHLORIDE [Concomitant]
     Active Substance: OXYCODONE HYDROCHLORIDE
     Indication: Diabetes mellitus
     Route: 048
     Dates: start: 20231127, end: 20231201
  7. TORASEMIDUM [Concomitant]
     Indication: Left ventricular failure
     Dosage: PART OF THE TIME THE DOSAGE WAS INCREASED TO 15 MG PER DAY
     Route: 048
     Dates: start: 202309, end: 20231207
  8. MORPHINE HYDROCHLORIDE [Concomitant]
     Active Substance: MORPHINE HYDROCHLORIDE
     Indication: Diabetes mellitus
     Dosage: TIME INTERVAL: AS NECESSARY
     Route: 048
     Dates: start: 20231201
  9. DAFALGAN [Concomitant]
     Active Substance: ACETAMINOPHEN
     Indication: Diabetes mellitus
     Route: 048
     Dates: start: 20231207
  10. DAFALGAN [Concomitant]
     Active Substance: ACETAMINOPHEN
     Indication: Diabetes mellitus
     Dates: start: 20231128, end: 20231129
  11. HALOPERIDOLUM [Concomitant]
     Indication: Nausea
     Dosage: TIME INTERVAL: AS NECESSARY
     Route: 048
     Dates: start: 202310
  12. FILGRASTIM [Concomitant]
     Active Substance: FILGRASTIM
     Dosage: 30 MIO. I.U./0.5 ML ONCE ; IN TOTAL
     Route: 058
     Dates: start: 20231201, end: 20231201
  13. ATORVASTATIN [Concomitant]
     Active Substance: ATORVASTATIN
     Indication: Coronary artery disease
     Route: 048
     Dates: start: 202309
  14. OXYCODONE [Concomitant]
     Active Substance: OXYCODONE\OXYCODONE HYDROCHLORIDE
     Indication: Diabetes mellitus
     Route: 048
     Dates: start: 202309, end: 20231127
  15. OXYCODONE [Concomitant]
     Active Substance: OXYCODONE\OXYCODONE HYDROCHLORIDE
     Indication: Diabetes mellitus
     Route: 048
     Dates: start: 202309, end: 20231127
  16. HEPARIN SODIUM [Concomitant]
     Active Substance: HEPARIN SODIUM
     Indication: Thrombosis prophylaxis
     Dosage: ^	12000-32000 I.U./24H^
     Route: 042
     Dates: start: 20231128
  17. AMIODARONUM [Concomitant]
     Indication: Coronary artery disease
     Dosage: 0.5-0-0-0
     Route: 048
     Dates: start: 202309
  18. PREDNISOLONE [Concomitant]
     Active Substance: PREDNISOLONE
     Dosage: DOSE REDUCTION TO 5 MG, EXACT DATE UNKNOWN
     Route: 048
     Dates: start: 202309
  19. KCL HAUSMANN [Concomitant]
     Route: 048
     Dates: start: 20231129, end: 20231205
  20. Paspertin [Concomitant]
     Indication: Nausea
     Dosage: TIME INTERVAL: AS NECESSARY: ^	APPROXIMATELY 1X/2 D
     Route: 048
     Dates: start: 20231128
  21. KCL [Concomitant]
     Active Substance: POTASSIUM CHLORIDE
     Indication: Hypokalaemia
     Route: 042
     Dates: start: 20231201, end: 202312
  22. LEVOFLOXACIN [Concomitant]
     Active Substance: LEVOFLOXACIN
     Indication: Infection
     Dates: start: 20231112, end: 20231113
  23. NALOXONE HYDROCHLORIDE\OXYCODONE HYDROCHLORIDE [Concomitant]
     Active Substance: NALOXONE HYDROCHLORIDE\OXYCODONE HYDROCHLORIDE
     Indication: Diabetes mellitus
     Route: 048
     Dates: start: 20231201, end: 20231207
  24. NALOXONE HYDROCHLORIDE\OXYCODONE HYDROCHLORIDE [Concomitant]
     Active Substance: NALOXONE HYDROCHLORIDE\OXYCODONE HYDROCHLORIDE
     Indication: Diabetes mellitus
     Route: 048
     Dates: start: 20231201, end: 20231207
  25. NALOXONE HYDROCHLORIDE\OXYCODONE HYDROCHLORIDE [Concomitant]
     Active Substance: NALOXONE HYDROCHLORIDE\OXYCODONE HYDROCHLORIDE
     Indication: Diabetes mellitus
     Route: 048
     Dates: start: 20231201, end: 20231206
  26. ENTRESTO [Concomitant]
     Active Substance: SACUBITRIL\VALSARTAN
     Indication: Left ventricular failure
     Dosage: DOSE: 24.5/25.5
     Route: 048
     Dates: start: 202309, end: 20231128
  27. EPLERENONE [Concomitant]
     Active Substance: EPLERENONE
     Dosage: DOSE DOUBLED, EXACT DATE UNKNOWN
     Route: 048
     Dates: start: 202309, end: 20231129
  28. TOBRADEX [Concomitant]
     Active Substance: DEXAMETHASONE\TOBRAMYCIN
     Dosage: LEFT EYE
     Route: 047
     Dates: start: 20231203, end: 20231207
  29. ASPIRIN [Concomitant]
     Active Substance: ASPIRIN
     Indication: Coronary artery disease
     Dosage: 1-0-0-0
     Route: 048
     Dates: start: 202309
  30. AZACTAM [Concomitant]
     Active Substance: AZTREONAM
     Indication: Infection
     Route: 042
     Dates: start: 20231129, end: 20231213
  31. FUROSEMIDE [Concomitant]
     Active Substance: FUROSEMIDE
     Indication: Left ventricular failure
     Route: 048
     Dates: start: 202309
  32. EZETIMIBE [Concomitant]
     Active Substance: EZETIMIBE
     Indication: Coronary artery disease
     Dosage: 0-0-1-0
     Route: 048
     Dates: start: 202309
  33. Spasmex [Concomitant]
     Route: 048
     Dates: start: 20231130
  34. PANTOPRAZOLE [Concomitant]
     Active Substance: PANTOPRAZOLE
     Dosage: ^	1-0-0-0^
     Route: 048
     Dates: start: 202309
  35. CEFTRIAXONE [Concomitant]
     Active Substance: CEFTRIAXONE\CEFTRIAXONE SODIUM
     Indication: Infection
     Dates: start: 20231112
  36. ONDANSETRON [Concomitant]
     Active Substance: ONDANSETRON
     Indication: Nausea
     Dosage: TIME INTERVAL: AS NECESSARY
     Route: 048
     Dates: start: 20231130, end: 20231130
  37. POLYETHYLENE GLYCOL 3350\POTASSIUM CHLORIDE\SODIUM BICARBONATE\SODIUM [Concomitant]
     Active Substance: POLYETHYLENE GLYCOL 3350\POTASSIUM CHLORIDE\SODIUM BICARBONATE\SODIUM CHLORIDE
     Indication: Constipation
     Route: 048
     Dates: start: 20231207
  38. Vitamin a blache [Concomitant]
     Indication: Dry eye
     Dosage: BOTH EYES
     Route: 047
     Dates: start: 20231202
  39. APIXABAN [Concomitant]
     Active Substance: APIXABAN
     Indication: Atrial fibrillation
     Route: 048
     Dates: start: 202309, end: 20231128
  40. BISOPROLOL [Concomitant]
     Active Substance: BISOPROLOL\BISOPROLOL FUMARATE
     Indication: Coronary artery disease
     Dosage: ^	0.5-0-0-0^
     Route: 048
     Dates: start: 202309
  41. Gentamicinum [Concomitant]
     Route: 042
     Dates: start: 20231128, end: 20231205
  42. HYALURONATE SODIUM [Concomitant]
     Active Substance: HYALURONATE SODIUM
     Indication: Dry eye
     Dosage: BOTH EYES
     Route: 047
     Dates: start: 20231202
  43. ACETAMINOPHEN [Concomitant]
     Active Substance: ACETAMINOPHEN
     Dosage: TIME INTERVAL: AS NECESSARY: 3 TIMES A DAY
     Route: 042
     Dates: start: 20231129
  44. ^Konakion mm [Concomitant]
     Route: 042
     Dates: start: 20231201, end: 20231206

REACTIONS (2)
  - Acute kidney injury [Recovering/Resolving]
  - Agranulocytosis [Recovering/Resolving]

NARRATIVE: CASE EVENT DATE: 20231113
